FAERS Safety Report 17094573 (Version 1)
Quarter: 2019Q4

REPORT INFORMATION
  Report Type: Spontaneous
  Country: ES (occurrence: ES)
  Receive Date: 20191129
  Receipt Date: 20191129
  Transmission Date: 20200122
  Serious: Yes (Hospitalization)
  Sender: FDA-Public Use
  Company Number: ES-ACCORD-162468

PATIENT
  Age: 76 Year
  Sex: Male

DRUGS (10)
  1. FUROSEMIDE CINFA [Suspect]
     Active Substance: FUROSEMIDE
     Indication: HYPERTENSION
     Dosage: STRENGTH: 40 MG TABLETS EFG, 10 TABLETS
     Route: 048
     Dates: start: 20171221, end: 20190912
  2. MICARDIS PLUS [Suspect]
     Active Substance: HYDROCHLOROTHIAZIDE\TELMISARTAN
     Indication: HYPERTENSION
     Dosage: STRENGTH: 80 MG / 12.5 MG, 28 TABLETS
     Route: 048
     Dates: start: 20120423, end: 20190912
  3. LOVASTATIN. [Concomitant]
     Active Substance: LOVASTATIN
     Route: 048
  4. FENTANYL MATRIX CINFA [Concomitant]
     Dosage: STRENGTH: 25 MICROGRAMS / H, TRANSDERMAL EFG PATCHES, 5 PATCHES
     Route: 062
  5. OMEPRAZOLE. [Concomitant]
     Active Substance: OMEPRAZOLE
     Route: 048
  6. ELIQUIS [Concomitant]
     Active Substance: APIXABAN
     Dosage: STRENGTH: 5 MG, 60 TABLETS
     Route: 048
  7. MYCOPHENOLIC ACID. [Suspect]
     Active Substance: MYCOPHENOLIC ACID
     Indication: PULMONARY FIBROSIS
     Route: 048
     Dates: start: 20180703, end: 20190912
  8. ALLOPURINOL. [Concomitant]
     Active Substance: ALLOPURINOL
     Route: 048
  9. PREDNISONE. [Concomitant]
     Active Substance: PREDNISONE
     Route: 048
  10. EPLERENONE CINFA [Suspect]
     Active Substance: EPLERENONE
     Indication: PRODUCT USED FOR UNKNOWN INDICATION
     Dosage: STRENGTH: 50 MG, EFG, 30 TABLETS
     Route: 048
     Dates: start: 20180412, end: 20190912

REACTIONS (3)
  - Acute kidney injury [Recovered/Resolved]
  - Syncope [Recovered/Resolved]
  - Hypotension [Recovered/Resolved]

NARRATIVE: CASE EVENT DATE: 20190912
